FAERS Safety Report 4996477-3 (Version None)
Quarter: 2006Q2

REPORT INFORMATION
  Report Type: 
  Country: None (occurrence: None)
  Receive Date: 20060509
  Receipt Date: 20060427
  Transmission Date: 20061013
  Serious: Yes (Hospitalization)
  Sender: FDA-Public Use
  Company Number: JP-JNJFOC-20040202741

PATIENT
  Sex: Female
  Weight: 51 kg

DRUGS (13)
  1. REMICADE [Suspect]
     Route: 042
  2. REMICADE [Suspect]
     Route: 042
  3. REMICADE [Suspect]
     Route: 042
  4. REMICADE [Suspect]
     Route: 042
  5. REMICADE [Suspect]
     Route: 042
  6. REMICADE [Suspect]
     Route: 042
  7. REMICADE [Suspect]
     Route: 042
  8. REMICADE [Suspect]
     Route: 042
  9. REMICADE [Suspect]
     Route: 042
  10. REMICADE [Suspect]
     Indication: CROHN'S DISEASE
     Route: 042
  11. PENTASA [Concomitant]
     Indication: CROHN'S DISEASE
     Route: 048
  12. PREDONINE [Concomitant]
     Indication: CROHN'S DISEASE
     Route: 048
  13. FLAGYL [Concomitant]
     Indication: CROHN'S DISEASE
     Route: 048

REACTIONS (3)
  - BLOOD CREATINE PHOSPHOKINASE INCREASED [None]
  - DERMATITIS PSORIASIFORM [None]
  - LUPUS-LIKE SYNDROME [None]
